FAERS Safety Report 7552179-0 (Version None)
Quarter: 2011Q2

REPORT INFORMATION
  Report Type: 
  Country: None (occurrence: None)
  Receive Date: 20110609
  Receipt Date: 20110531
  Transmission Date: 20111010
  Serious: Yes (Hospitalization, Other)
  Sender: FDA-Public Use
  Company Number: 2009JP001841

PATIENT
  Age: 85 Year
  Sex: Female
  Weight: 35 kg

DRUGS (14)
  1. LIMARMONE (LIMAPROST) [Concomitant]
  2. MAGNESIUM OXIDE (MAGNESIUM OXIDE) [Concomitant]
  3. KM (MENTHOL, CALCIUM CARBONATE, SODIUM CARBONATE ANHYDROUS, SIMALDRATE [Concomitant]
  4. EBRANTIL (URAPIDIL) [Concomitant]
  5. BLOPRESS (CANDESARTAN CILEXETIL) [Concomitant]
  6. LASIX [Suspect]
     Dosage: 10 MG, UID/QD, ORAL
     Route: 048
     Dates: start: 20080501, end: 20090306
  7. SOLON (SOFALCONE) [Concomitant]
  8. BERIZYM (ENZYMES NOS) [Concomitant]
  9. ULGUT (BENEXATE HYDROCHLORIDE) [Concomitant]
  10. VESICARE [Suspect]
     Indication: POLLAKIURIA
     Dosage: 5 MG, UID/QD, ORAL
     Route: 048
     Dates: start: 20080501, end: 20090306
  11. MECLOBALAMIN (MECLOBALAMIN) [Concomitant]
  12. MILMAG (MAGNESIUM HYDROXIDE) [Concomitant]
  13. PLATIBIT (ALFACALCIDOL) [Concomitant]
  14. LOSARTAN POTASSIUM [Concomitant]

REACTIONS (10)
  - HYPOKALAEMIA [None]
  - BLOOD CREATINE PHOSPHOKINASE INCREASED [None]
  - RHABDOMYOLYSIS [None]
  - FALL [None]
  - CARDIAC DISORDER [None]
  - ELECTROCARDIOGRAM QT PROLONGED [None]
  - DEHYDRATION [None]
  - MUSCLE STRAIN [None]
  - HYPOPHAGIA [None]
  - BRAIN CONTUSION [None]
